FAERS Safety Report 9000679 (Version 1)
Quarter: 2012Q4

REPORT INFORMATION
  Report Type: Spontaneous
  Country: IT (occurrence: None)
  Receive Date: 20121226
  Receipt Date: 20121226
  Transmission Date: 20130627
  Serious: Yes (Hospitalization)
  Sender: FDA-Public Use
  Company Number: DSA_61480_2012

PATIENT
  Age: 64 Year
  Sex: Female

DRUGS (4)
  1. ENALAPRIL MALEATE (ENALAPRIL MALEATE) [Suspect]
     Indication: INTENTIONAL SELF-INJURY
     Dosage: 14 posological units; one time dose; not as prescribed oral)
     Dates: start: 20121209, end: 20121209
  2. TRIAZOLAM (TRIAZOLAM) [Suspect]
     Indication: INTENTIONAL SELF-INJURY
     Dosage: 10 posologial units; one time dose; not as prescribed oral)
     Dates: start: 20121209, end: 20121209
  3. CARBOUTHIUM-LITHIUM CARBNOATE [Suspect]
     Indication: INTENTIONAL SELF-INJURY
  4. CARBOUTHIUM-LITHIUM CARBNOATE [Suspect]
     Indication: INTENTIONAL SELF-INJURY
     Dosage: 300 (60 posological units); one time does; not as prescribed oral)
     Dates: start: 20121209, end: 20121209

REACTIONS (5)
  - Intentional self-injury [None]
  - Sopor [None]
  - Bradykinesia [None]
  - Bradyphrenia [None]
  - Intentional overdose [None]
